FAERS Safety Report 17900502 (Version 1)
Quarter: 2020Q2

REPORT INFORMATION
  Report Type: Spontaneous
  Country: US (occurrence: US)
  Receive Date: 20200615
  Receipt Date: 20200615
  Transmission Date: 20200714
  Serious: Yes (Other)
  Sender: FDA-Public Use
  Company Number: None

PATIENT
  Age: 74 Year
  Sex: Female
  Weight: 97.5 kg

DRUGS (15)
  1. CEFEPIME 1G IV Q8H [Concomitant]
     Dates: start: 20200612
  2. EPOPROSTENOL CONTINUEOUS NEB [Concomitant]
     Dates: start: 20200615
  3. AZITHROMYCIN 500MG IV DAILY [Concomitant]
     Dates: start: 20200609, end: 20200613
  4. LANTUS 11 UNITS QHS [Concomitant]
     Dates: start: 20200611
  5. MIDAZOLAM INFUSION [Concomitant]
     Active Substance: MIDAZOLAM HYDROCHLORIDE
     Dates: start: 20200610
  6. SODIUM BICARBONATE INFUSION [Concomitant]
     Dates: start: 20200611, end: 20200613
  7. REMDESIVIR. [Suspect]
     Active Substance: REMDESIVIR
     Indication: COVID-19
     Dosage: ?          OTHER FREQUENCY:200MG/D,100MG/D;?
     Route: 042
     Dates: start: 20200609, end: 20200611
  8. FENTANYL INFUSION [Concomitant]
     Active Substance: FENTANYL
     Dates: start: 20200610
  9. INSULIN LISPRO SLIDING SCALE [Concomitant]
     Dates: start: 20200609
  10. PIP/TAZO 4.5G IV Q8H (EXTENDED INFUSION) [Concomitant]
     Dates: start: 20200609, end: 20200612
  11. PROPOFOL INFUSION [Concomitant]
     Active Substance: PROPOFOL
     Dates: start: 20200610, end: 20200614
  12. LEVOTHYROXINE 88MCG PO DAILY [Concomitant]
     Dates: start: 20200610
  13. ENOXAPARIN 40MG SUBQ Q24H [Concomitant]
     Dates: start: 20200609, end: 20200614
  14. NOREPINEPHRINE INFUSION [Concomitant]
     Dates: start: 20200610
  15. HEPARIN INFUSION [Concomitant]
     Dates: start: 20200614

REACTIONS (2)
  - Glomerular filtration rate decreased [None]
  - Blood creatinine increased [None]

NARRATIVE: CASE EVENT DATE: 20200611
